FAERS Safety Report 8329468-5 (Version None)
Quarter: 2012Q2

REPORT INFORMATION
  Report Type: 
  Country: None (occurrence: None)
  Receive Date: 20120502
  Receipt Date: 20120419
  Transmission Date: 20120825
  Serious: Yes (Life-Threatening, Hospitalization, Other)
  Sender: FDA-Public Use
  Company Number: JP-ROCHE-1047187

PATIENT
  Sex: Female
  Weight: 48 kg

DRUGS (7)
  1. CAFFEINE HYDRATE [Concomitant]
     Indication: INFLUENZA
     Route: 048
     Dates: start: 20120204, end: 20120208
  2. SELBEX [Concomitant]
     Indication: INFLUENZA
     Route: 048
     Dates: start: 20120204, end: 20120208
  3. TAMIFLU [Suspect]
     Indication: INFLUENZA
     Route: 048
     Dates: start: 20120204, end: 20120208
  4. ASVERIN [Concomitant]
     Indication: INFLUENZA
     Route: 048
     Dates: start: 20120204, end: 20120208
  5. NEORESTAMIN [Concomitant]
     Indication: INFLUENZA
     Route: 048
     Dates: start: 20120204, end: 20120208
  6. BETAHISTINE MESILATE [Concomitant]
     Route: 048
  7. LEVOFLOXACIN [Concomitant]
     Indication: INFECTION
     Route: 048
     Dates: start: 20120207, end: 20120208

REACTIONS (6)
  - ACIDOSIS [None]
  - ANAEMIA [None]
  - THROMBOCYTOPENIA [None]
  - ANAEMIA HAEMOLYTIC AUTOIMMUNE [None]
  - ALTERED STATE OF CONSCIOUSNESS [None]
  - IDIOPATHIC THROMBOCYTOPENIC PURPURA [None]
